FAERS Safety Report 14998855 (Version 2)
Quarter: 2018Q3

REPORT INFORMATION
  Report Type: Spontaneous
  Country: US (occurrence: US)
  Receive Date: 20180612
  Receipt Date: 20180718
  Transmission Date: 20181010
  Serious: No
  Sender: FDA-Public Use
  Company Number: US-ASTRAZENECA-2018SE65035

PATIENT
  Age: 28998 Day
  Sex: Male

DRUGS (7)
  1. FASOMAX [Concomitant]
     Indication: BONE DENSITY DECREASED
     Route: 048
  2. TUDORZA PRESSAIR [Suspect]
     Active Substance: ACLIDINIUM BROMIDE
     Indication: CHRONIC OBSTRUCTIVE PULMONARY DISEASE
     Dosage: 400 UG, ONE INHALATION TWICE A DAY
     Route: 055
  3. SAW PALMETTO [Concomitant]
     Active Substance: HERBALS\SAW PALMETTO
     Route: 048
  4. ASA [Concomitant]
     Active Substance: ASPIRIN
     Route: 048
  5. SELENIUM [Concomitant]
     Active Substance: SELENIUM
     Route: 048
  6. VITAMIN D3 [Concomitant]
     Active Substance: CHOLECALCIFEROL
     Route: 048
  7. TUMERIC [Concomitant]
     Active Substance: HERBALS\TURMERIC
     Route: 048

REACTIONS (3)
  - Intentional product misuse [Unknown]
  - Device malfunction [Unknown]
  - Bone density decreased [Unknown]

NARRATIVE: CASE EVENT DATE: 20180514
